FAERS Safety Report 9064483 (Version 1)
Quarter: 2013Q1

REPORT INFORMATION
  Report Type: Spontaneous
  Country: US (occurrence: US)
  Receive Date: 20130128
  Receipt Date: 20130128
  Transmission Date: 20140127
  Serious: Yes (Hospitalization, Other)
  Sender: FDA-Public Use
  Company Number: US-JNJFOC-20130110360

PATIENT
  Age: 60 Year
  Sex: Male

DRUGS (2)
  1. RISPERDAL CONSTA [Suspect]
     Indication: PRODUCT USED FOR UNKNOWN INDICATION
     Route: 030
  2. RISPERDAL [Suspect]
     Indication: PRODUCT USED FOR UNKNOWN INDICATION
     Route: 048
     Dates: start: 201301

REACTIONS (6)
  - Psychotic disorder [Unknown]
  - Aggression [Unknown]
  - Aphasia [Recovering/Resolving]
  - Abasia [Recovering/Resolving]
  - Catatonia [Recovering/Resolving]
  - Drug dose omission [Recovered/Resolved]
